FAERS Safety Report 8455168-7 (Version None)
Quarter: 2012Q2

REPORT INFORMATION
  Report Type: 
  Country: None (occurrence: None)
  Receive Date: 20120621
  Receipt Date: 20120615
  Transmission Date: 20120825
  Serious: Yes (Life-Threatening)
  Sender: FDA-Public Use
  Company Number: DE-SANOFI-AVENTIS-2012SA042858

PATIENT
  Age: 40 Year
  Sex: Female

DRUGS (5)
  1. METHOTREXATE [Concomitant]
  2. CITALOPRAM [Interacting]
     Route: 065
  3. TORSEMIDE [Concomitant]
  4. HYDROXYCHLOROQUINE SULFATE [Suspect]
     Route: 048
  5. FOLIC ACID [Concomitant]

REACTIONS (3)
  - VENTRICULAR FIBRILLATION [None]
  - CIRCULATORY COLLAPSE [None]
  - DRUG INTERACTION [None]
